FAERS Safety Report 9931080 (Version 2)
Quarter: 2014Q1

REPORT INFORMATION
  Report Type: Report from Study
  Country: HK (occurrence: HK)
  Receive Date: 20140227
  Receipt Date: 20140320
  Transmission Date: 20141002
  Serious: Yes (Death)
  Sender: FDA-Public Use
  Company Number: HK-ROCHE-1354626

PATIENT
  Age: 61 Year
  Sex: 0
  Weight: 41 kg

DRUGS (1)
  1. TRASTUZUMAB EMTANSINE [Suspect]
     Indication: GALLBLADDER CANCER METASTATIC
     Dosage: MOST RECENT DOSE PRIOR TO ADVERSE EVENTS: 14/FEB/2014
     Route: 042
     Dates: start: 20140115, end: 20140216

REACTIONS (2)
  - Disease progression [Fatal]
  - Thrombocytopenia [Recovered/Resolved]
